FAERS Safety Report 6507735-5 (Version None)
Quarter: 2009Q4

REPORT INFORMATION
  Report Type: 
  Country: None (occurrence: None)
  Receive Date: 20091201
  Receipt Date: 20090729
  Transmission Date: 20100525
  Serious: Yes (Hospitalization)
  Sender: FDA-Public Use
  Company Number: 2009-201107-NL

PATIENT
  Sex: Female
  Weight: 74.3899 kg

DRUGS (1)
  1. NUVARING [Suspect]
     Indication: CONTRACEPTION
     Dosage: 1 DF; QM
     Dates: end: 20090617

REACTIONS (1)
  - PULMONARY EMBOLISM [None]
